FAERS Safety Report 6580602-7 (Version None)
Quarter: 2010Q1

REPORT INFORMATION
  Report Type: 
  Country: None (occurrence: None)
  Receive Date: 20100212
  Receipt Date: 20100105
  Transmission Date: 20100710
  Serious: Yes (Other)
  Sender: FDA-Public Use
  Company Number: US-JNJFOC-20100104366

PATIENT
  Age: 31 Year
  Sex: Male
  Weight: 97.52 kg

DRUGS (2)
  1. TYLENOL COLD MULTI-SYMPTOM DAYTIME RAPID RELEASE GELS [Suspect]
     Indication: NASOPHARYNGITIS
     Route: 048
  2. TYLENOL COLD MULTI-SYMPTOM NIGHTTIME RAPID RELEASE GELS [Suspect]
     Indication: NASOPHARYNGITIS
     Route: 048

REACTIONS (2)
  - DRUG INEFFECTIVE [None]
  - HALLUCINATION [None]
